FAERS Safety Report 7957612-8 (Version None)
Quarter: 2011Q4

REPORT INFORMATION
  Report Type: 
  Country: None (occurrence: None)
  Receive Date: 20111205
  Receipt Date: 20111121
  Transmission Date: 20120403
  Serious: Yes (Other)
  Sender: FDA-Public Use
  Company Number: PHHY2011AU101448

PATIENT
  Sex: Male

DRUGS (3)
  1. COLECALCIFEROL [Concomitant]
     Dosage: 25 UG DAILY
  2. THIAMINE HCL [Concomitant]
     Dosage: 100 MG DAILY
  3. CLOZARIL [Suspect]
     Dosage: 200 MG
     Dates: start: 20111102

REACTIONS (10)
  - DYSPNOEA [None]
  - INFLUENZA LIKE ILLNESS [None]
  - C-REACTIVE PROTEIN INCREASED [None]
  - CHEST PAIN [None]
  - ELECTROCARDIOGRAM CHANGE [None]
  - OROPHARYNGEAL PAIN [None]
  - HEART RATE INCREASED [None]
  - TONSILLITIS [None]
  - LYMPHOCYTE COUNT INCREASED [None]
  - ELECTROCARDIOGRAM T WAVE INVERSION [None]
